FAERS Safety Report 8665008 (Version 3)
Quarter: 2013Q4

REPORT INFORMATION
  Report Type: Spontaneous
  Country: US (occurrence: US)
  Receive Date: 20120715
  Receipt Date: 20131031
  Transmission Date: 20140711
  Serious: Yes (Death, Other)
  Sender: FDA-Public Use
  Company Number: US-009507513-1207USA002266

PATIENT
  Sex: Female

DRUGS (10)
  1. JANUVIA [Suspect]
     Indication: DIABETES MELLITUS
     Dosage: 100 MG, QD
     Route: 048
     Dates: start: 20120615
  2. ENALAPRIL MALEATE [Concomitant]
  3. CRESTOR [Concomitant]
     Dosage: 20 MG, UNK
  4. LEVOTHROID [Concomitant]
     Dosage: 0.05 MICROGRAM, UNK
  5. TRILIPIX [Concomitant]
  6. CLARITIN [Concomitant]
  7. LEVEMIR [Concomitant]
  8. DEXILANT [Concomitant]
  9. TRAMADOL HYDROCHLORIDE [Concomitant]
  10. CARAFATE [Concomitant]
     Dosage: 1 UNK, UNK

REACTIONS (2)
  - Abdominal strangulated hernia [Fatal]
  - Sepsis [Fatal]
